FAERS Safety Report 22322611 (Version 2)
Quarter: 2023Q2

REPORT INFORMATION
  Report Type: Other
  Country: CA (occurrence: CA)
  Receive Date: 20230516
  Receipt Date: 20230613
  Transmission Date: 20230722
  Serious: Yes (Other)
  Sender: FDA-Public Use
  Company Number: CA-CELLTRION INC.-2023CA010020

PATIENT

DRUGS (8)
  1. TRASTUZUMAB [Suspect]
     Active Substance: TRASTUZUMAB
     Indication: HER2 positive gastric cancer
     Dosage: 8 MG/KG CYCLICAL
  2. TRASTUZUMAB [Suspect]
     Active Substance: TRASTUZUMAB
     Dosage: 6 MG/KG CYCLICAL
  3. CARBOPLATIN [Suspect]
     Active Substance: CARBOPLATIN
     Indication: HER2 positive gastric cancer
     Dosage: INJECTION BP
  4. CARBOPLATIN [Suspect]
     Active Substance: CARBOPLATIN
     Indication: HER2 positive gastric cancer
     Dosage: INJECTION BP
  5. RALTITREXED [Suspect]
     Active Substance: RALTITREXED
     Indication: HER2 positive gastric cancer
  6. ATORVASTATIN [Concomitant]
     Active Substance: ATORVASTATIN
     Dosage: 40 MG EVERY 1 DAYS
  7. BISOPROLOL [Concomitant]
     Active Substance: BISOPROLOL
     Dosage: 5 MG EVERY 1 DAYS
  8. PERINDOPRIL [Concomitant]
     Active Substance: PERINDOPRIL
     Dosage: 4 MG EVERY 1 DAYS

REACTIONS (5)
  - Myelosuppression [Unknown]
  - Anaemia [Unknown]
  - Fatigue [Unknown]
  - Neutropenia [Unknown]
  - Off label use [Unknown]
